FAERS Safety Report 10055066 (Version 1)
Quarter: 2014Q2

REPORT INFORMATION
  Report Type: Spontaneous
  Country: US (occurrence: US)
  Receive Date: 20140402
  Receipt Date: 20140402
  Transmission Date: 20141212
  Serious: No
  Sender: FDA-Public Use
  Company Number: US-SA-2014SA002077

PATIENT
  Age: 58 Year
  Sex: Female

DRUGS (10)
  1. AUBAGIO [Suspect]
     Indication: MULTIPLE SCLEROSIS
     Route: 065
     Dates: start: 20130301
  2. ALENDRONATE SODIUM [Concomitant]
     Route: 048
  3. VENLAFAXINE [Concomitant]
     Route: 048
  4. BACLOFEN [Concomitant]
     Route: 048
  5. CYSTEX [Concomitant]
     Route: 048
  6. IBUPROFEN [Concomitant]
     Route: 048
  7. IRON [Concomitant]
     Route: 048
  8. VESICARE [Concomitant]
     Route: 048
  9. VITAMIN B12 [Concomitant]
     Route: 048
  10. VITAMIN D3 [Concomitant]
     Route: 048

REACTIONS (1)
  - Alopecia [Recovering/Resolving]
